FAERS Safety Report 10362558 (Version 2)
Quarter: 2014Q3

REPORT INFORMATION
  Report Type: Spontaneous
  Country: FR (occurrence: None)
  Receive Date: 20140725
  Receipt Date: 20140806
  Transmission Date: 20150326
  Serious: Yes (Other)
  Sender: FDA-Public Use
  Company Number: 228802

PATIENT
  Age: 53 Year
  Sex: Female
  Weight: 55 kg

DRUGS (3)
  1. PROGESTAN (PROGESTERONE) [Concomitant]
  2. PICATO [Suspect]
     Active Substance: INGENOL MEBUTATE
     Indication: ACTINIC KERATOSIS
     Route: 061
     Dates: start: 20140527, end: 20140527
  3. ESTREVA (ESTRADIOL) [Concomitant]

REACTIONS (9)
  - Insomnia [None]
  - Application site haematoma [None]
  - Application site vesicles [None]
  - Incorrect drug administration duration [None]
  - Application site discolouration [None]
  - Application site pustules [None]
  - Application site scab [None]
  - Application site erythema [None]
  - Application site pain [None]

NARRATIVE: CASE EVENT DATE: 20140527
